FAERS Safety Report 5720281-1 (Version None)
Quarter: 2008Q2

REPORT INFORMATION
  Report Type: 
  Country: None (occurrence: None)
  Receive Date: 20080428
  Receipt Date: 20080417
  Transmission Date: 20081010
  Serious: Yes (Hospitalization)
  Sender: FDA-Public Use
  Company Number: AU-ROCHE-459064

PATIENT
  Sex: Male
  Weight: 84 kg

DRUGS (3)
  1. PEGASYS [Suspect]
     Dosage: DOSAGE FORM REPORTED AS INJECTION 1.0 ML. ADMINISTERED WEEKLY.
     Route: 058
     Dates: start: 20060731
  2. RIBAVIRIN [Suspect]
     Route: 048
     Dates: start: 20060731
  3. PAROXETINE HCL [Concomitant]
     Dosage: TOTAL DAILY DOSE REPORTED AS 10.
     Dates: start: 20060501

REACTIONS (1)
  - PHARYNGEAL HAEMORRHAGE [None]
